FAERS Safety Report 15861446 (Version 1)
Quarter: 2019Q1

REPORT INFORMATION
  Report Type: Spontaneous
  Country: US (occurrence: US)
  Receive Date: 20190124
  Receipt Date: 20190124
  Transmission Date: 20190417
  Serious: Yes (Other)
  Sender: FDA-Public Use
  Company Number: US-009507513-1901USA006117

PATIENT
  Sex: Female
  Weight: 53.52 kg

DRUGS (1)
  1. NEXPLANON [Suspect]
     Active Substance: ETONOGESTREL
     Dosage: 1 ROD, UNK
     Dates: start: 20180227

REACTIONS (3)
  - Device dislocation [Unknown]
  - Complication of device removal [Unknown]
  - No adverse event [Unknown]

NARRATIVE: CASE EVENT DATE: 2018
